FAERS Safety Report 9891876 (Version 2)
Quarter: 2014Q1

REPORT INFORMATION
  Report Type: Spontaneous
  Country: BR (occurrence: BR)
  Receive Date: 20140212
  Receipt Date: 20140310
  Transmission Date: 20141002
  Serious: Yes (Other)
  Sender: FDA-Public Use
  Company Number: PHHY2014BR015701

PATIENT
  Age: 30 Year
  Sex: Female
  Weight: 68 kg

DRUGS (2)
  1. RITALIN LA [Suspect]
     Indication: ATTENTION DEFICIT/HYPERACTIVITY DISORDER
     Dosage: 2 DF (20MG) DAILY
     Route: 048
     Dates: start: 201006, end: 201201
  2. RITALIN LA [Suspect]
     Dosage: UNK
     Route: 048

REACTIONS (1)
  - Glaucoma [Unknown]
